FAERS Safety Report 6029840-2 (Version None)
Quarter: 2008Q4

REPORT INFORMATION
  Report Type: 
  Country: None (occurrence: None)
  Receive Date: 20081222
  Receipt Date: 20081001
  Transmission Date: 20090506
  Serious: No
  Sender: FDA-Public Use
  Company Number: US-WYE-H06205108

PATIENT
  Age: 62 Year
  Sex: Female
  Weight: 65.38 kg

DRUGS (5)
  1. PRISTIQ [Suspect]
     Indication: DEPRESSION
     Dosage: 50 MG 1X PER 1 TOT, ORAL
     Route: 048
     Dates: start: 20080929, end: 20080929
  2. NORVASC [Concomitant]
  3. BENICAR HCT (OLMESARTAN MEDOXOMIL/HYDROCHLOROTHIAZIDE) [Concomitant]
  4. LANTUS [Concomitant]
  5. NOVOLOG [Concomitant]

REACTIONS (7)
  - ABDOMINAL DISTENSION [None]
  - ABDOMINAL PAIN [None]
  - FREQUENT BOWEL MOVEMENTS [None]
  - GASTROINTESTINAL MOTILITY DISORDER [None]
  - MALAISE [None]
  - NAUSEA [None]
  - SOMNOLENCE [None]
